FAERS Safety Report 19286310 (Version 1)
Quarter: 2021Q2

REPORT INFORMATION
  Report Type: Spontaneous
  Country: CN (occurrence: CN)
  Receive Date: 20210521
  Receipt Date: 20210521
  Transmission Date: 20210717
  Serious: Yes (Other)
  Sender: FDA-Public Use
  Company Number: CN-ROCHE-2832689

PATIENT
  Age: 58 Year
  Sex: Male

DRUGS (11)
  1. TECENTRIQ [Suspect]
     Active Substance: ATEZOLIZUMAB
     Dosage: 2 CYCLES MAINTENANCE TREATMENT
     Route: 041
     Dates: start: 20210413
  2. CISPLATIN. [Concomitant]
     Active Substance: CISPLATIN
     Indication: SMALL CELL LUNG CANCER
     Route: 041
     Dates: start: 20201015, end: 20201201
  3. CISPLATIN. [Concomitant]
     Active Substance: CISPLATIN
     Route: 041
     Dates: start: 20201228
  4. ETOPOSIDE. [Concomitant]
     Active Substance: ETOPOSIDE
     Indication: SMALL CELL LUNG CANCER
     Route: 041
     Dates: start: 20201015, end: 20201201
  5. TECENTRIQ [Suspect]
     Active Substance: ATEZOLIZUMAB
     Indication: SMALL CELL LUNG CANCER
     Route: 041
     Dates: start: 20201015, end: 20201201
  6. ETOPOSIDE. [Concomitant]
     Active Substance: ETOPOSIDE
     Dosage: 1 CYCLE
     Dates: start: 20210203
  7. CISPLATIN. [Concomitant]
     Active Substance: CISPLATIN
     Dosage: 1 CYCLE
     Dates: start: 20210306
  8. ETOPOSIDE. [Concomitant]
     Active Substance: ETOPOSIDE
     Route: 041
     Dates: start: 20201228
  9. ETOPOSIDE. [Concomitant]
     Active Substance: ETOPOSIDE
     Dosage: 1 CYCLE
     Dates: start: 20210306
  10. CISPLATIN. [Concomitant]
     Active Substance: CISPLATIN
     Dosage: 1 CYCLE
     Dates: start: 20210203
  11. TECENTRIQ [Suspect]
     Active Substance: ATEZOLIZUMAB
     Route: 041
     Dates: start: 20210306

REACTIONS (2)
  - Myelosuppression [Unknown]
  - Gastrointestinal disorder [Unknown]
